FAERS Safety Report 5025656-4 (Version None)
Quarter: 2006Q2

REPORT INFORMATION
  Report Type: 
  Country: None (occurrence: None)
  Receive Date: 20060426
  Receipt Date: 20051231
  Transmission Date: 20061013
  Serious: Yes (Other)
  Sender: FDA-Public Use
  Company Number: 2005141191

PATIENT
  Age: 32 Year
  Sex: Female

DRUGS (6)
  1. LYRICA [Suspect]
     Indication: NEURALGIA
     Dosage: 600 MG (300 MG, 2 IN 1 D), ORAL
     Route: 048
     Dates: start: 20050928, end: 20051001
  2. NEURONTIN [Concomitant]
  3. METFORMIN [Concomitant]
  4. INSULIN [Concomitant]
  5. ADVIL [Concomitant]
  6. IBUPROFEN [Concomitant]

REACTIONS (1)
  - HALLUCINATION, VISUAL [None]
